FAERS Safety Report 13399893 (Version 1)
Quarter: 2017Q2

REPORT INFORMATION
  Report Type: Spontaneous
  Country: US (occurrence: US)
  Receive Date: 20170404
  Receipt Date: 20170404
  Transmission Date: 20170830
  Serious: Yes (Other)
  Sender: FDA-Public Use
  Company Number: None

PATIENT
  Age: 52 Year
  Sex: Female
  Weight: 80.8 kg

DRUGS (1)
  1. ENTECAVIR. [Suspect]
     Active Substance: ENTECAVIR
     Indication: CHRONIC HEPATITIS B
     Route: 048
     Dates: start: 20150331

REACTIONS (5)
  - Arthralgia [None]
  - Gait disturbance [None]
  - Drug intolerance [None]
  - Product substitution issue [None]
  - Myalgia [None]

NARRATIVE: CASE EVENT DATE: 2015
